FAERS Safety Report 9901820 (Version 1)
Quarter: 2014Q1

REPORT INFORMATION
  Report Type: Spontaneous
  Country: US (occurrence: US)
  Receive Date: 20140217
  Receipt Date: 20140217
  Transmission Date: 20141002
  Serious: No
  Sender: FDA-Public Use
  Company Number: US-GILEAD-2011-0043705

PATIENT
  Age: 78 Year
  Sex: Female
  Weight: 75.9 kg

DRUGS (2)
  1. LETAIRIS [Suspect]
     Indication: PULMONARY ARTERIAL HYPERTENSION
  2. TYVASO [Suspect]
     Indication: PULMONARY ARTERIAL HYPERTENSION
     Dates: start: 20110705

REACTIONS (3)
  - Cough [Unknown]
  - Chest discomfort [Unknown]
  - Generalised oedema [Unknown]
